FAERS Safety Report 19901874 (Version 5)
Quarter: 2022Q1

REPORT INFORMATION
  Report Type: Report from Study
  Country: US (occurrence: US)
  Receive Date: 20210930
  Receipt Date: 20220324
  Transmission Date: 20220423
  Serious: Yes (Other)
  Sender: FDA-Public Use
  Company Number: US-GLAXOSMITHKLINE-US2021AMR039695

PATIENT
  Sex: Female

DRUGS (24)
  1. NIRAPARIB [Suspect]
     Active Substance: NIRAPARIB
     Indication: Endometrial cancer
     Dosage: 200 MG, QD
     Dates: start: 202101, end: 202102
  2. NIRAPARIB [Suspect]
     Active Substance: NIRAPARIB
     Dosage: 100 MG, QD
     Dates: start: 20210227
  3. NIRAPARIB [Suspect]
     Active Substance: NIRAPARIB
     Dosage: 100 MG, QD
     Dates: start: 20210305
  4. NIRAPARIB [Suspect]
     Active Substance: NIRAPARIB
     Dosage: 100 MG, QD
  5. NIRAPARIB [Suspect]
     Active Substance: NIRAPARIB
     Dosage: 100 MG, QD
     Route: 048
  6. NIRAPARIB [Suspect]
     Active Substance: NIRAPARIB
     Dosage: 100MG, QD
  7. NIRAPARIB [Suspect]
     Active Substance: NIRAPARIB
     Dosage: 100 MG, QD (100MG PM WITH SNACK)
     Route: 048
  8. NIRAPARIB [Suspect]
     Active Substance: NIRAPARIB
     Dosage: 100 MG, QD
  9. NIRAPARIB [Suspect]
     Active Substance: NIRAPARIB
     Dosage: 100 MG, QD
  10. NIRAPARIB [Suspect]
     Active Substance: NIRAPARIB
     Dosage: 100 MG, QD (100MG PM WITH SNACK)
     Route: 048
  11. NIRAPARIB [Suspect]
     Active Substance: NIRAPARIB
     Dosage: 100 MG, QD
  12. PROZAC [Concomitant]
     Active Substance: FLUOXETINE HYDROCHLORIDE
     Indication: Product used for unknown indication
     Dosage: UNK (40G)
  13. PROZAC [Concomitant]
     Active Substance: FLUOXETINE HYDROCHLORIDE
     Dosage: 40 G
  14. TRINTELLIX [Concomitant]
     Active Substance: VORTIOXETINE HYDROBROMIDE
     Indication: Product used for unknown indication
     Dosage: 20 MG
  15. XARELTO [Concomitant]
     Active Substance: RIVAROXABAN
     Indication: Product used for unknown indication
     Dosage: UNK (20)
  16. LIOTHYRONINE [Concomitant]
     Active Substance: LIOTHYRONINE
     Indication: Product used for unknown indication
     Dosage: 5 UG
  17. ALPRAZOLAM [Concomitant]
     Active Substance: ALPRAZOLAM
     Indication: Product used for unknown indication
     Dosage: 1 MG
  18. ONDANSETRON [Concomitant]
     Active Substance: ONDANSETRON
     Indication: Product used for unknown indication
     Dosage: 8 MG
  19. VITAMIN D3 [Concomitant]
     Active Substance: CHOLECALCIFEROL
     Indication: Product used for unknown indication
     Dosage: 5000 IU
  20. ZINC [Concomitant]
     Active Substance: ZINC
     Indication: Product used for unknown indication
     Dosage: 75 MG
  21. VITAMIN B12 [Concomitant]
     Active Substance: CYANOCOBALAMIN
     Indication: Product used for unknown indication
     Dosage: 5000 UG
  22. VITAMIN C WITH ROSE HIPS [Concomitant]
     Indication: Product used for unknown indication
     Dosage: UNK
  23. CITRACAL + D3 [Concomitant]
     Indication: Product used for unknown indication
     Dosage: UNK
  24. GABAPENTIN [Concomitant]
     Active Substance: GABAPENTIN
     Indication: Product used for unknown indication
     Dosage: UNK

REACTIONS (13)
  - Polyarthritis [Not Recovered/Not Resolved]
  - Platelet count decreased [Recovered/Resolved]
  - Myalgia [Unknown]
  - Somnolence [Recovered/Resolved]
  - Nausea [Recovered/Resolved]
  - Constipation [Not Recovered/Not Resolved]
  - Photosensitivity reaction [Not Recovered/Not Resolved]
  - Arthralgia [Not Recovered/Not Resolved]
  - Thyroid disorder [Unknown]
  - Abdominal pain lower [Not Recovered/Not Resolved]
  - Tendonitis [Not Recovered/Not Resolved]
  - Off label use [Not Recovered/Not Resolved]
  - Product dose omission issue [Unknown]
